FAERS Safety Report 14895933 (Version 1)
Quarter: 2018Q2

REPORT INFORMATION
  Report Type: Spontaneous
  Country: US (occurrence: US)
  Receive Date: 20180515
  Receipt Date: 20180515
  Transmission Date: 20180711
  Serious: No
  Sender: FDA-Public Use
  Company Number: US-MYLANLABS-2018M1026676

PATIENT
  Age: 83 Year
  Sex: Female

DRUGS (3)
  1. ASPIRIN                            /00002701/ [Concomitant]
     Active Substance: ASPIRIN
     Indication: DIABETES MELLITUS
  2. OXYBUTYNIN CHLORIDE EXTENDED-RELEASE TABLETS USP [Suspect]
     Active Substance: OXYBUTYNIN CHLORIDE
     Indication: MUSCULAR WEAKNESS
     Dosage: 10 MG, QD
  3. METFORMIN [Concomitant]
     Active Substance: METFORMIN HYDROCHLORIDE
     Indication: DIABETES MELLITUS

REACTIONS (2)
  - Dry mouth [Unknown]
  - Drug ineffective [Unknown]
